FAERS Safety Report 24212530 (Version 1)
Quarter: 2024Q3

REPORT INFORMATION
  Report Type: Spontaneous
  Country: US (occurrence: US)
  Receive Date: 20240815
  Receipt Date: 20240815
  Transmission Date: 20241016
  Serious: No
  Sender: ALK-ABELLO
  Company Number: US-ALK-ABELLO A/S-2024AA002979

PATIENT

DRUGS (1)
  1. CASEIN [Suspect]
     Active Substance: CASEIN
     Indication: Product used for unknown indication
     Route: 065

REACTIONS (3)
  - Milk allergy [Unknown]
  - Product use in unapproved indication [Unknown]
  - Off label use [Unknown]
